FAERS Safety Report 12440946 (Version 1)
Quarter: 2016Q2

REPORT INFORMATION
  Report Type: Spontaneous
  Country: US (occurrence: US)
  Receive Date: 20160607
  Receipt Date: 20160607
  Transmission Date: 20160815
  Serious: Yes (Other)
  Sender: FDA-Public Use
  Company Number: US-009507513-1606USA001981

PATIENT
  Sex: Female

DRUGS (2)
  1. INSULIN [Interacting]
     Active Substance: INSULIN NOS
  2. JANUVIA [Suspect]
     Active Substance: SITAGLIPTIN PHOSPHATE
     Indication: DIABETES MELLITUS INADEQUATE CONTROL
     Dosage: UNK
     Route: 048
     Dates: start: 201510

REACTIONS (4)
  - Injection site haemorrhage [Unknown]
  - Drug ineffective [Unknown]
  - Drug interaction [Unknown]
  - Tinnitus [Unknown]
